FAERS Safety Report 23126661 (Version 3)
Quarter: 2024Q1

REPORT INFORMATION
  Report Type: Other
  Country: CA (occurrence: CA)
  Receive Date: 20231030
  Receipt Date: 20240319
  Transmission Date: 20240409
  Serious: Yes (Other)
  Sender: FDA-Public Use
  Company Number: None

PATIENT
  Age: 17 Year
  Sex: Male

DRUGS (10)
  1. METHYLPHENIDATE HYDROCHLORIDE [Suspect]
     Active Substance: METHYLPHENIDATE HYDROCHLORIDE
     Indication: Attention deficit hyperactivity disorder
     Dosage: 72 MILLIGRAM 1 EVERY 1 DAYS
     Route: 048
  2. METHYLPHENIDATE HYDROCHLORIDE [Suspect]
     Active Substance: METHYLPHENIDATE HYDROCHLORIDE
     Dosage: UNK
     Route: 065
  3. ATOMOXETINE [Suspect]
     Active Substance: ATOMOXETINE\ATOMOXETINE HYDROCHLORIDE
     Indication: Attention deficit hyperactivity disorder
     Dosage: 60 MILLIGRAM, 1 EVERY 1 DAYS
     Route: 065
  4. BUPROPION [Suspect]
     Active Substance: BUPROPION
     Indication: Attention deficit hyperactivity disorder
     Dosage: 300 MILLIGRAM 1 EVERY 1 DAYS
     Route: 065
  5. DEXTROAMPHETAMINE [Suspect]
     Active Substance: DEXTROAMPHETAMINE
     Indication: Attention deficit hyperactivity disorder
     Dosage: UNK
     Route: 065
  6. GUANFACINE [Suspect]
     Active Substance: GUANFACINE
     Indication: Attention deficit hyperactivity disorder
     Dosage: 3 MILLIGRAM 1 EVERY 1 DAYS
     Route: 065
  7. LISDEXAMFETAMINE DIMESYLATE [Suspect]
     Active Substance: LISDEXAMFETAMINE DIMESYLATE
     Indication: Attention deficit hyperactivity disorder
     Dosage: UNK
     Route: 065
  8. DEXTROAMPHET SACCHARAT, AMPHET ASPARTATE, DEXTROAMPHET SULFATE AND AMP [Suspect]
     Active Substance: AMPHETAMINE ASPARTATE\AMPHETAMINE ASPARTATE MONOHYDRATE\AMPHETAMINE SULFATE\DEXTROAMPHETAMINE SACCHA
     Indication: Attention deficit hyperactivity disorder
     Dosage: UNK (REPORTED 2 TIMES)
     Route: 065
  9. MODAFINIL [Suspect]
     Active Substance: MODAFINIL
     Indication: Attention deficit hyperactivity disorder
     Dosage: 100 MILLIGRAM 1 EVERY 1 DAYS
     Route: 065
  10. GUANFACINE HYDROCHLORIDE [Suspect]
     Active Substance: GUANFACINE HYDROCHLORIDE
     Indication: Attention deficit hyperactivity disorder
     Dosage: 3 MILLIGRAM, 1 EVERY 1 DAYS
     Route: 065

REACTIONS (6)
  - Anxiety [Unknown]
  - Drug ineffective [Unknown]
  - Drug tolerance [Unknown]
  - Insomnia [Unknown]
  - Nausea [Unknown]
  - Off label use [Unknown]
